FAERS Safety Report 8501126-3 (Version None)
Quarter: 2012Q3

REPORT INFORMATION
  Report Type: 
  Country: None (occurrence: None)
  Receive Date: 20120710
  Receipt Date: 20120702
  Transmission Date: 20120928
  Serious: Yes (Hospitalization, Disabling, Other)
  Sender: FDA-Public Use
  Company Number: PHEH2012US012091

PATIENT
  Sex: Male
  Weight: 77.248 kg

DRUGS (5)
  1. AFINITOR [Suspect]
     Indication: NEUROENDOCRINE TUMOUR
     Dosage: 10 MG, QD
     Route: 048
     Dates: start: 20120509, end: 20120611
  2. INDERAL [Concomitant]
     Indication: HYPERTENSION
     Dosage: 80 MG, QD
     Route: 048
     Dates: start: 20071120
  3. FLOMAX [Concomitant]
     Indication: HYPERTENSION
     Dosage: 0.4 MG, QD
     Route: 048
     Dates: start: 20120617
  4. LIPID MODIFYING AGENTS [Concomitant]
     Dosage: 40 MG, QD
     Route: 048
     Dates: start: 20120315
  5. LAMIVUDINE [Concomitant]
     Indication: LIPIDS ABNORMAL
     Dosage: 10 MG, QD
     Route: 048
     Dates: start: 20090331

REACTIONS (8)
  - NEPHROPATHY [None]
  - FANCONI SYNDROME [None]
  - RENAL TUBULAR NECROSIS [None]
  - RENAL FAILURE [None]
  - DIARRHOEA [None]
  - TUBULOINTERSTITIAL NEPHRITIS [None]
  - PROTEINURIA [None]
  - LETHARGY [None]
